FAERS Safety Report 17050733 (Version 1)
Quarter: 2019Q4

REPORT INFORMATION
  Report Type: Spontaneous
  Country: US (occurrence: US)
  Receive Date: 20191119
  Receipt Date: 20191119
  Transmission Date: 20200122
  Serious: Yes (Other)
  Sender: FDA-Public Use
  Company Number: US-SA-2019SA318157

PATIENT
  Sex: Male

DRUGS (1)
  1. ZANTAC 75 [Suspect]
     Active Substance: RANITIDINE HYDROCHLORIDE
     Dosage: UNK UNK, UNK
     Dates: start: 1995, end: 201909

REACTIONS (6)
  - Hepatic cancer [Unknown]
  - Impaired quality of life [Unknown]
  - Pain [Unknown]
  - Anxiety [Unknown]
  - Colon cancer [Unknown]
  - Emotional distress [Unknown]

NARRATIVE: CASE EVENT DATE: 2001
